FAERS Safety Report 9679401 (Version 1)
Quarter: 2013Q4

REPORT INFORMATION
  Report Type: Spontaneous
  Country: US (occurrence: US)
  Receive Date: 20131109
  Receipt Date: 20131109
  Transmission Date: 20140711
  Serious: No
  Sender: FDA-Public Use
  Company Number: US-SANOFI-AVENTIS-2013SA075926

PATIENT
  Sex: Female

DRUGS (6)
  1. MULTAQ [Suspect]
     Route: 065
  2. XARELTO [Concomitant]
     Route: 065
  3. AMLODIPINE [Concomitant]
     Route: 065
  4. HYDROCHLOROTHIAZIDE [Concomitant]
     Route: 065
  5. METOPROLOL [Concomitant]
     Route: 065
  6. ALL OTHER THERAPEUTIC PRODUCTS [Concomitant]
     Route: 065

REACTIONS (3)
  - Abdominal distension [Not Recovered/Not Resolved]
  - Hypotension [Unknown]
  - Abdominal pain [Not Recovered/Not Resolved]
